FAERS Safety Report 7154190-0 (Version None)
Quarter: 2010Q4

REPORT INFORMATION
  Report Type: 
  Country: None (occurrence: None)
  Receive Date: 20101213
  Receipt Date: 20101130
  Transmission Date: 20110411
  Serious: Yes (Hospitalization)
  Sender: FDA-Public Use
  Company Number: NL-MEDIMMUNE-MEDI-0011909

PATIENT
  Sex: Female
  Weight: 4.95 kg

DRUGS (4)
  1. SYNAGIS [Suspect]
     Route: 030
     Dates: start: 20101005, end: 20101102
  2. SYNAGIS [Suspect]
     Route: 030
     Dates: start: 20101129, end: 20101129
  3. BECLOMETASONE DIPROPIONATE [Concomitant]
     Dates: start: 20100101
  4. SALBUTAMOL [Concomitant]
     Dates: start: 20100101

REACTIONS (2)
  - HYPOPHAGIA [None]
  - RESPIRATORY TRACT INFECTION VIRAL [None]
